FAERS Safety Report 4898586-6 (Version None)
Quarter: 2006Q1

REPORT INFORMATION
  Report Type: 
  Country: None (occurrence: None)
  Receive Date: 20060130
  Receipt Date: 20060120
  Transmission Date: 20060701
  Serious: Yes (Death, Hospitalization)
  Sender: FDA-Public Use
  Company Number: 2006-01-1064

PATIENT
  Age: 35 Year
  Sex: Female

DRUGS (5)
  1. REBETOL [Suspect]
     Indication: RESPIRATORY SYNCYTIAL VIRUS INFECTION
     Dosage: 1200 MG ORAL
     Route: 048
     Dates: start: 20060111, end: 20060119
  2. MEROPENEM [Concomitant]
  3. VANCOMYCIN [Concomitant]
  4. CASPOFUNGIN ACETATE [Concomitant]
  5. RIBAVIRIN [Concomitant]

REACTIONS (4)
  - DISEASE PROGRESSION [None]
  - LUNG INFILTRATION [None]
  - RESPIRATORY FAILURE [None]
  - SHOCK [None]
